FAERS Safety Report 8618906-6 (Version None)
Quarter: 2012Q3

REPORT INFORMATION
  Report Type: 
  Country: None (occurrence: None)
  Receive Date: 20120824
  Receipt Date: 20120821
  Transmission Date: 20120928
  Serious: Yes (Disabling, Other)
  Sender: FDA-Public Use
  Company Number: GB-PFIZER INC-2012204211

PATIENT
  Age: 32 Year
  Sex: Male

DRUGS (2)
  1. VENLAFAXINE HCL [Suspect]
     Dosage: 75-150MG DAILY
     Route: 048
  2. DIAZEPAM [Concomitant]
     Dosage: UNK

REACTIONS (8)
  - ANXIETY [None]
  - HALLUCINATION [None]
  - TACHYPHRENIA [None]
  - EMOTIONAL DISTRESS [None]
  - DEPERSONALISATION [None]
  - DELUSION [None]
  - FEELING ABNORMAL [None]
  - INSOMNIA [None]
